FAERS Safety Report 13284214 (Version 1)
Quarter: 2017Q1

REPORT INFORMATION
  Report Type: Spontaneous
  Country: US (occurrence: US)
  Receive Date: 20170301
  Receipt Date: 20170301
  Transmission Date: 20170428
  Serious: Yes (Hospitalization)
  Sender: FDA-Public Use
  Company Number: US-BELCHER PHARMACEUTICALS, LLC-2017VTS00021

PATIENT
  Sex: Female

DRUGS (2)
  1. CHEMOTHERAPY (UNSPECIFIED) [Suspect]
     Active Substance: UNSPECIFIED INGREDIENT
  2. HYOSCYAMINE SULFATE SL [Suspect]
     Active Substance: HYOSCYAMINE SULFATE

REACTIONS (1)
  - Pyrexia [Unknown]
